FAERS Safety Report 4332601-3 (Version None)
Quarter: 2004Q1

REPORT INFORMATION
  Report Type: 
  Country: None (occurrence: None)
  Receive Date: 20040330
  Receipt Date: 20040315
  Transmission Date: 20041129
  Serious: Yes (Hospitalization)
  Sender: FDA-Public Use
  Company Number: FR-JNJFOC-20040303272

PATIENT
  Age: 82 Year
  Sex: Female

DRUGS (1)
  1. HALDOL [Suspect]
     Indication: ABNORMAL BEHAVIOUR
     Dosage: 6 MG, IN 1 DAY, ORAL
     Route: 048
     Dates: start: 20030915, end: 20031117

REACTIONS (3)
  - ASTHENIA [None]
  - DILATATION VENTRICULAR [None]
  - GAIT DISTURBANCE [None]
